FAERS Safety Report 9226461 (Version 3)
Quarter: 2013Q2

REPORT INFORMATION
  Report Type: Spontaneous
  Country: US (occurrence: US)
  Receive Date: 20130411
  Receipt Date: 20130604
  Transmission Date: 20140414
  Serious: No
  Sender: FDA-Public Use
  Company Number: US-009507513-1304USA003388

PATIENT
  Age: 68 Year
  Sex: Female
  Weight: 63.49 kg

DRUGS (1)
  1. MIRALAX [Suspect]
     Indication: CONSTIPATION
     Dosage: UNK, QD
     Route: 048
     Dates: start: 2010

REACTIONS (5)
  - Haematemesis [Unknown]
  - Chest pain [Not Recovered/Not Resolved]
  - Condition aggravated [Recovered/Resolved]
  - Feeling abnormal [Not Recovered/Not Resolved]
  - Incorrect drug administration duration [Recovered/Resolved]
